FAERS Safety Report 10073374 (Version 2)
Quarter: 2014Q2

REPORT INFORMATION
  Report Type: Spontaneous
  Country: ES (occurrence: ES)
  Receive Date: 20140411
  Receipt Date: 20140513
  Transmission Date: 20141212
  Serious: Yes (Death, Other)
  Sender: FDA-Public Use
  Company Number: ES-CELGENEUS-144-21660-14035425

PATIENT
  Age: 48 Year
  Sex: Male

DRUGS (9)
  1. ABRAXANE [Suspect]
     Indication: BREAST CANCER
     Route: 041
     Dates: start: 20120507
  2. ABRAXANE [Suspect]
     Route: 041
  3. ABRAXANE [Suspect]
     Route: 041
     Dates: start: 20120702
  4. ABRAXANE [Suspect]
     Route: 041
     Dates: start: 201209
  5. PROZAC [Concomitant]
     Indication: PRODUCT USED FOR UNKNOWN INDICATION
     Route: 065
  6. ORFIDAL [Concomitant]
     Indication: PRODUCT USED FOR UNKNOWN INDICATION
     Route: 065
  7. NOLOTIL [Concomitant]
     Indication: PRODUCT USED FOR UNKNOWN INDICATION
     Route: 065
  8. DOLOVOLTAREN [Concomitant]
     Indication: PRODUCT USED FOR UNKNOWN INDICATION
     Route: 065
  9. OMEPRAZOLE [Concomitant]
     Indication: PRODUCT USED FOR UNKNOWN INDICATION
     Route: 065

REACTIONS (13)
  - Metastases to meninges [Fatal]
  - Metastases to liver [Unknown]
  - Metastases to pleura [Unknown]
  - Haemoglobin decreased [Unknown]
  - Lymphadenopathy [Unknown]
  - Respiratory failure [Unknown]
  - Platelet count decreased [Unknown]
  - Asthenia [Unknown]
  - Neuropathy peripheral [Unknown]
  - Myalgia [Unknown]
  - Asthenia [Unknown]
  - Anaemia [Unknown]
  - Musculoskeletal pain [Unknown]
